FAERS Safety Report 19544607 (Version 2)
Quarter: 2023Q2

REPORT INFORMATION
  Report Type: Report from Study
  Country: GB (occurrence: GB)
  Receive Date: 20210713
  Receipt Date: 20230602
  Transmission Date: 20230722
  Serious: Yes (Other)
  Sender: FDA-Public Use
  Company Number: GB-TEVA-2021-GB-1931991

PATIENT
  Sex: Female

DRUGS (4)
  1. COPAXONE [Suspect]
     Active Substance: GLATIRAMER ACETATE
     Indication: Multiple sclerosis
     Dosage: 40MG/ML
     Route: 058
     Dates: start: 201605
  2. COPAXONE [Suspect]
     Active Substance: GLATIRAMER ACETATE
     Route: 058
     Dates: start: 201605
  3. ESTROGENS [Concomitant]
     Active Substance: ESTROGENS
     Indication: Product used for unknown indication
     Dosage: PATCHES
  4. RAMIPRIL [Concomitant]
     Active Substance: RAMIPRIL
     Indication: Blood pressure abnormal

REACTIONS (11)
  - Shock [Unknown]
  - Multiple sclerosis relapse [Unknown]
  - Abdominal discomfort [Unknown]
  - Product use issue [Unknown]
  - Hypersensitivity [Unknown]
  - Abdominal distension [Unknown]
  - Inflammation [Unknown]
  - Injection site pain [Unknown]
  - Hypersensitivity [Unknown]
  - Product use complaint [Unknown]
  - Wrong technique in product usage process [Unknown]
